FAERS Safety Report 9914595 (Version 1)
Quarter: 2014Q1

REPORT INFORMATION
  Report Type: Spontaneous
  Country: GB (occurrence: GB)
  Receive Date: 20140220
  Receipt Date: 20140220
  Transmission Date: 20141002
  Serious: Yes (Other)
  Sender: FDA-Public Use
  Company Number: GB-TEVA-462459ISR

PATIENT
  Age: 73 Year
  Sex: Female
  Weight: 63 kg

DRUGS (2)
  1. LANSOPRAZOLE [Suspect]
     Indication: HIATUS HERNIA
     Dosage: 15 MILLIGRAM DAILY;
     Route: 048
     Dates: start: 20100601, end: 20140118
  2. THYROXINE [Concomitant]

REACTIONS (4)
  - Dyspnoea [Recovering/Resolving]
  - Flatulence [Recovering/Resolving]
  - Upper-airway cough syndrome [Recovering/Resolving]
  - Frequent bowel movements [Recovering/Resolving]
